FAERS Safety Report 4377527-4 (Version None)
Quarter: 2004Q2

REPORT INFORMATION
  Report Type: 
  Country: None (occurrence: None)
  Receive Date: 20040615
  Receipt Date: 20040603
  Transmission Date: 20050107
  Serious: Yes (Other)
  Sender: FDA-Public Use
  Company Number: JP-MERCK-0406USA00385

PATIENT
  Age: 39 Year
  Sex: Female

DRUGS (11)
  1. FOSAMAX [Suspect]
     Indication: OSTEOPOROSIS
     Route: 048
     Dates: start: 20040301, end: 20040603
  2. HORMONES (UNSPECIFIED) [Concomitant]
     Route: 065
  3. METHYLPREDNISOLONE SODIUM SUCCINATE [Concomitant]
     Route: 065
     Dates: start: 20040525, end: 20040527
  4. PREDNISOLONE [Concomitant]
     Route: 065
     Dates: start: 20040528
  5. PREDNISOLONE [Concomitant]
     Route: 065
  6. PREDNISOLONE [Concomitant]
     Route: 065
  7. PREDNISOLONE [Concomitant]
     Route: 065
  8. PREDNISOLONE [Concomitant]
     Route: 065
     Dates: start: 19940101
  9. RABEPRAZOLE SODIUM [Concomitant]
     Route: 065
  10. SULFAMETHOXAZOLE AND TRIMETHOPRIM [Concomitant]
     Route: 065
     Dates: start: 20040401
  11. ZOPICLONE [Concomitant]
     Route: 065

REACTIONS (7)
  - ALANINE AMINOTRANSFERASE INCREASED [None]
  - ASPARTATE AMINOTRANSFERASE INCREASED [None]
  - BLOOD ALKALINE PHOSPHATASE INCREASED [None]
  - BLOOD LACTATE DEHYDROGENASE INCREASED [None]
  - GAMMA-GLUTAMYLTRANSFERASE INCREASED [None]
  - HEPATIC FUNCTION ABNORMAL [None]
  - PROTEIN TOTAL DECREASED [None]
